FAERS Safety Report 14391367 (Version 1)
Quarter: 2018Q1

REPORT INFORMATION
  Report Type: Spontaneous
  Country: CA (occurrence: CA)
  Receive Date: 20180116
  Receipt Date: 20180116
  Transmission Date: 20180509
  Serious: Yes (Other)
  Sender: FDA-Public Use
  Company Number: CA-CONCORDIA PHARMACEUTICALS INC.-GSH201801-000196

PATIENT
  Sex: Female

DRUGS (5)
  1. LEFLUNOMIDE. [Suspect]
     Active Substance: LEFLUNOMIDE
     Indication: RHEUMATOID ARTHRITIS
     Route: 048
  2. MELOXICAM. [Concomitant]
     Active Substance: MELOXICAM
  3. KEVZARA [Suspect]
     Active Substance: SARILUMAB
     Indication: PRODUCT USED FOR UNKNOWN INDICATION
     Route: 065
     Dates: start: 1995, end: 2011
  4. SULFASALAZINE. [Concomitant]
     Active Substance: SULFASALAZINE
  5. PLAQUENIL [Suspect]
     Active Substance: HYDROXYCHLOROQUINE SULFATE
     Indication: PRODUCT USED FOR UNKNOWN INDICATION
     Route: 065
     Dates: start: 20170324, end: 20170816

REACTIONS (4)
  - Keratitis bacterial [Unknown]
  - Drug intolerance [Unknown]
  - Eye ulcer [Unknown]
  - Therapeutic response decreased [Unknown]
